FAERS Safety Report 8986449 (Version 2)
Quarter: 2013Q1

REPORT INFORMATION
  Report Type: Spontaneous
  Country: FR (occurrence: FR)
  Receive Date: 20121226
  Receipt Date: 20130318
  Transmission Date: 20140127
  Serious: Yes (Hospitalization)
  Sender: FDA-Public Use
  Company Number: PHHY2012FR115597

PATIENT
  Age: 78 Year
  Sex: Female

DRUGS (10)
  1. EXELON PATCH [Suspect]
     Indication: DEMENTIA ALZHEIMER^S TYPE
     Dosage: 4.6 MG/24HOURS
     Route: 062
     Dates: start: 20121128, end: 201212
  2. ANTICOAGULANTS [Concomitant]
     Indication: ARRHYTHMIA
  3. MICARDIS [Concomitant]
     Indication: HYPERTENSION
     Dosage: 80 MG, QD
     Route: 048
  4. CORDARONE [Concomitant]
     Dosage: UNK UKN, (5 DAYS WEEKLY)
     Dates: start: 2010
  5. PRADAXA [Concomitant]
     Dosage: 110 MG, BID
     Dates: start: 2010
  6. ALDACTONE [Concomitant]
     Dosage: 0.5 DF, UNK
     Dates: start: 2010
  7. STILNOX [Concomitant]
     Dosage: UNK UKN, (QD)
     Dates: start: 2010
  8. TAHOR [Concomitant]
     Dosage: 10 MG, QD
     Dates: start: 2010
  9. INEXIUM [Concomitant]
     Dosage: 40 MG, QD
     Dates: start: 2010
  10. BURINEX [Concomitant]
     Dates: start: 2010

REACTIONS (4)
  - Cardiac failure [Recovering/Resolving]
  - Face oedema [Recovered/Resolved]
  - Dyspnoea [Recovering/Resolving]
  - Malaise [Unknown]
